FAERS Safety Report 7683600-5 (Version None)
Quarter: 2011Q3

REPORT INFORMATION
  Report Type: 
  Country: None (occurrence: None)
  Receive Date: 20110815
  Receipt Date: 20110808
  Transmission Date: 20111222
  Serious: Yes (Hospitalization)
  Sender: FDA-Public Use
  Company Number: US-UCBSA-031468

PATIENT
  Sex: Male
  Weight: 68 kg

DRUGS (11)
  1. SELEGILINE [Concomitant]
     Indication: PARKINSON'S DISEASE
     Dates: start: 20081001
  2. ZANTAC [Concomitant]
     Indication: HIATUS HERNIA
     Dates: start: 20051101
  3. ARTANE [Concomitant]
     Dates: start: 20091117, end: 20100421
  4. FLAGYL [Concomitant]
     Indication: PANCREATITIS
  5. VITAMIN B-12 [Concomitant]
     Indication: GENERAL PHYSICAL HEALTH DETERIORATION
     Dates: start: 20060101
  6. ARTANE [Concomitant]
     Indication: PARKINSON'S DISEASE
     Dates: start: 20060101, end: 20091117
  7. ARTANE [Concomitant]
     Dates: start: 20100624
  8. CIPROFLOXACIN [Concomitant]
     Indication: PANCREATITIS
     Dates: start: 20100713, end: 20100718
  9. ROTIGOTINE [Suspect]
     Indication: PARKINSON'S DISEASE
     Dosage: 38
     Dates: start: 20090326
  10. ARTANE [Concomitant]
     Dates: start: 20100428, end: 20100623
  11. CIPROFLOXACIN [Concomitant]

REACTIONS (1)
  - PANCREATIC CYST [None]
